FAERS Safety Report 4645285-1 (Version None)
Quarter: 2005Q2

REPORT INFORMATION
  Report Type: 
  Country: None (occurrence: None)
  Receive Date: 20050331
  Receipt Date: 20041207
  Transmission Date: 20051028
  Serious: No
  Sender: FDA-Public Use
  Company Number: 04P-163-0273986

PATIENT
  Age: 66 Year
  Sex: Female
  Weight: 56.6996 kg

DRUGS (9)
  1. HUMIRA [Suspect]
     Indication: RHEUMATOID ARTHRITIS
     Dosage: 40 MG, 1 IN 2 WK, SUBCUTANEOUS, 40 MG, 1 IN 2 WK, SUBCUTANEOUS
     Route: 058
     Dates: start: 20040701, end: 20041001
  2. HUMIRA [Suspect]
     Indication: RHEUMATOID ARTHRITIS
     Dosage: 40 MG, 1 IN 2 WK, SUBCUTANEOUS, 40 MG, 1 IN 2 WK, SUBCUTANEOUS
     Route: 058
     Dates: start: 20041109
  3. METHOTREXATE [Concomitant]
  4. NAPROXEN SODIUM [Concomitant]
  5. PREDNISONE [Concomitant]
  6. FISH OIL [Concomitant]
  7. CALCIUM GLUCONATE [Concomitant]
  8. AMLODIPINE BESYLATE [Concomitant]
  9. ALENDRONATE SODIUM [Concomitant]

REACTIONS (6)
  - ANAEMIA [None]
  - DRUG INEFFECTIVE [None]
  - FAECES DISCOLOURED [None]
  - GASTROINTESTINAL ULCER [None]
  - NECK PAIN [None]
  - VOMITING [None]
